FAERS Safety Report 17837156 (Version 2)
Quarter: 2020Q2

REPORT INFORMATION
  Report Type: Spontaneous
  Country: KR (occurrence: KR)
  Receive Date: 20200528
  Receipt Date: 20200602
  Transmission Date: 20200714
  Serious: Yes (Other)
  Sender: FDA-Public Use
  Company Number: KR-PFIZER INC-2020206678

PATIENT
  Age: 51 Year
  Sex: Female
  Weight: 58 kg

DRUGS (3)
  1. LACTOBACILLUS [Concomitant]
     Active Substance: LACTOBACILLUS ACIDOPHILUS
     Dosage: UNK
  2. COLLAGEN [Concomitant]
     Active Substance: COLLAGEN
     Dosage: UNK
  3. DUAVIVE [Suspect]
     Active Substance: BAZEDOXIFENE ACETATE\ESTROGENS, CONJUGATED
     Indication: MENOPAUSAL SYMPTOMS
     Dosage: 1 DF, 1X/DAY
     Route: 048
     Dates: start: 2019, end: 20200523

REACTIONS (4)
  - Insomnia [Not Recovered/Not Resolved]
  - Palpitations [Not Recovered/Not Resolved]
  - Lethargy [Not Recovered/Not Resolved]
  - Anxiety [Not Recovered/Not Resolved]

NARRATIVE: CASE EVENT DATE: 202005
